FAERS Safety Report 7367031-3 (Version None)
Quarter: 2011Q1

REPORT INFORMATION
  Report Type: 
  Country: None (occurrence: None)
  Receive Date: 20110322
  Receipt Date: 20110315
  Transmission Date: 20110831
  Serious: Yes (Other)
  Sender: FDA-Public Use
  Company Number: US-AMGEN-USASP2011011526

PATIENT
  Age: 66 Year
  Sex: Female
  Weight: 68.934 kg

DRUGS (4)
  1. NEULASTA [Suspect]
     Indication: CHEMOTHERAPY
     Dosage: UNK
     Dates: start: 20090101
  2. NEUPOGEN [Suspect]
     Indication: NEUTROPENIA
     Dosage: 300 A?G, QD
     Dates: start: 20110302
  3. ATIVAN [Concomitant]
     Dosage: UNK
  4. ZOFRAN [Concomitant]
     Dosage: UNK

REACTIONS (6)
  - VOMITING [None]
  - MALIGNANT PERITONEAL NEOPLASM [None]
  - DIARRHOEA [None]
  - NAUSEA [None]
  - ARTHRALGIA [None]
  - BONE PAIN [None]
